FAERS Safety Report 16834172 (Version 1)
Quarter: 2019Q3

REPORT INFORMATION
  Report Type: Report from Study
  Country: GB (occurrence: GB)
  Receive Date: 20190920
  Receipt Date: 20190920
  Transmission Date: 20191005
  Serious: Yes (Other)
  Sender: FDA-Public Use
  Company Number: GB-KADMON PHARMACEUTICALS, LLC-KAD201909-000648

PATIENT

DRUGS (2)
  1. RIBAVIRIN. [Suspect]
     Active Substance: RIBAVIRIN
     Indication: HEPATITIS C
  2. PROD [DASABUVIR\OMBITASVIR\PARITAPREVIR\RITONAVIR] [Suspect]
     Active Substance: DASABUVIR\OMBITASVIR\PARITAPREVIR\RITONAVIR
     Indication: HEPATITIS C
     Dosage: 25/150/100 MG QD + 250 MG BID
     Route: 048

REACTIONS (1)
  - Acute respiratory failure [Unknown]
